FAERS Safety Report 12211453 (Version 4)
Quarter: 2016Q2

REPORT INFORMATION
  Report Type: Spontaneous
  Country: US (occurrence: US)
  Receive Date: 20160325
  Receipt Date: 20160621
  Transmission Date: 20160815
  Serious: Yes (Other)
  Sender: FDA-Public Use
  Company Number: US-TEVA-646806USA

PATIENT
  Age: 53 Year
  Sex: Female

DRUGS (4)
  1. WARFARIN [Interacting]
     Active Substance: WARFARIN
     Indication: PULMONARY EMBOLISM
     Dosage: AVERAGE TOTAL WEEKLY DOSE OF WARFARIN WAS 12 MG/WEEK
     Route: 065
  2. WARFARIN [Suspect]
     Active Substance: WARFARIN
     Indication: PULMONARY EMBOLISM
     Dosage: AVERAGE TOTAL WEEKLY DOSE 21 MG/WEEK
     Route: 065
  3. HEPARIN [Concomitant]
     Active Substance: HEPARIN SODIUM
     Indication: PULMONARY EMBOLISM
  4. EXEMESTANE. [Interacting]
     Active Substance: EXEMESTANE
     Indication: INTRADUCTAL PROLIFERATIVE BREAST LESION
     Route: 065

REACTIONS (3)
  - International normalised ratio fluctuation [Unknown]
  - Drug interaction [Recovered/Resolved]
  - International normalised ratio increased [Recovered/Resolved]
